FAERS Safety Report 5646025-X (Version None)
Quarter: 2008Q1

REPORT INFORMATION
  Report Type: 
  Country: None (occurrence: None)
  Receive Date: 20080227
  Receipt Date: 20080214
  Transmission Date: 20080703
  Serious: No
  Sender: FDA-Public Use
  Company Number: B0509475A

PATIENT
  Age: 8 Year
  Sex: Female
  Weight: 14.9687 kg

DRUGS (1)
  1. AUGMENTIN [Suspect]
     Indication: URINARY TRACT INFECTION
     Dosage: ORAL
     Route: 048
     Dates: start: 20080208, end: 20080214

REACTIONS (1)
  - EPILEPSY [None]
